FAERS Safety Report 4444985-6 (Version None)
Quarter: 2004Q3

REPORT INFORMATION
  Report Type: 
  Country: None (occurrence: None)
  Receive Date: 20040907
  Receipt Date: 20040820
  Transmission Date: 20050211
  Serious: Yes (Other)
  Sender: FDA-Public Use
  Company Number: 430010M04FRA

PATIENT
  Age: 63 Year
  Sex: Female

DRUGS (2)
  1. NOVANTRONE [Suspect]
     Indication: BREAST CANCER
     Dates: start: 19970101, end: 19980101
  2. THERAPEUTIC RADIOPHARMACEUTICALS [Suspect]
     Indication: BREAST CANCER
     Dates: start: 19970101

REACTIONS (3)
  - ACUTE MYELOID LEUKAEMIA [None]
  - ACUTE MYELOID LEUKAEMIA RECURRENT [None]
  - CYTOGENETIC ANALYSIS ABNORMAL [None]
